FAERS Safety Report 13489684 (Version 2)
Quarter: 2017Q3

REPORT INFORMATION
  Report Type: Spontaneous
  Country: US (occurrence: US)
  Receive Date: 20170427
  Receipt Date: 20170703
  Transmission Date: 20171127
  Serious: No
  Sender: FDA-Public Use
  Company Number: US-JNJFOC-20170427001

PATIENT
  Age: 52 Year
  Sex: Female
  Weight: 62.6 kg

DRUGS (1)
  1. STELARA [Suspect]
     Active Substance: USTEKINUMAB
     Indication: CROHN^S DISEASE
     Route: 058
     Dates: start: 20170228

REACTIONS (3)
  - Syringe issue [Unknown]
  - Product leakage [Unknown]
  - Drug dose omission [Unknown]

NARRATIVE: CASE EVENT DATE: 20170425
